FAERS Safety Report 15315965 (Version 1)
Quarter: 2018Q3

REPORT INFORMATION
  Report Type: Spontaneous
  Country: BR (occurrence: BR)
  Receive Date: 20180824
  Receipt Date: 20180824
  Transmission Date: 20181010
  Serious: Yes (Other)
  Sender: FDA-Public Use
  Company Number: BR-009507513-1808BRA010337

PATIENT
  Sex: Female
  Weight: 75 kg

DRUGS (3)
  1. MERCILON  CONTI [Suspect]
     Active Substance: DESOGESTREL\ETHINYL ESTRADIOL
     Dosage: UNK
     Route: 048
     Dates: start: 1998, end: 2000
  2. MERCILON  CONTI [Suspect]
     Active Substance: DESOGESTREL\ETHINYL ESTRADIOL
     Dosage: UNK
     Route: 048
     Dates: start: 2003, end: 2008
  3. MERCILON  CONTI [Suspect]
     Active Substance: DESOGESTREL\ETHINYL ESTRADIOL
     Dosage: UNK
     Route: 048
     Dates: start: 201708, end: 20180727

REACTIONS (5)
  - Pre-eclampsia [Unknown]
  - Seizure [Not Recovered/Not Resolved]
  - Pregnancy on oral contraceptive [Recovered/Resolved]
  - Unintended pregnancy [Recovered/Resolved]
  - Product availability issue [Unknown]
